FAERS Safety Report 15021049 (Version 2)
Quarter: 2018Q2

REPORT INFORMATION
  Report Type: Spontaneous
  Country: CH (occurrence: CH)
  Receive Date: 20180618
  Receipt Date: 20180627
  Transmission Date: 20180711
  Serious: Yes (Other)
  Sender: FDA-Public Use
  Company Number: CH-MYLANLABS-2018M1043175

PATIENT
  Sex: Male

DRUGS (7)
  1. ROACCUTAN [Suspect]
     Active Substance: ISOTRETINOIN
     Indication: ACNE
     Dosage: 20 MG, QD
     Route: 048
     Dates: start: 201601, end: 201607
  2. ROACCUTAN [Suspect]
     Active Substance: ISOTRETINOIN
     Dosage: 10 MG, BID
     Dates: start: 20160303
  3. ROACCUTAN [Suspect]
     Active Substance: ISOTRETINOIN
     Dosage: 40 MG, QD
     Dates: start: 20160305
  4. ZINERYT [Concomitant]
     Indication: PRODUCT USED FOR UNKNOWN INDICATION
     Dosage: UNK
     Dates: start: 2015, end: 2015
  5. ROACCUTAN [Suspect]
     Active Substance: ISOTRETINOIN
     Dosage: 10 MG, QD
     Route: 048
     Dates: start: 20160127
  6. BRUFEN [Suspect]
     Active Substance: IBUPROFEN
     Indication: ARTHRALGIA
     Dosage: UNK
     Route: 048
     Dates: start: 2017, end: 2017
  7. GLUCOSAMINE COMPLEX WITH CHONDROITIN [Concomitant]
     Indication: PRODUCT USED FOR UNKNOWN INDICATION
     Dosage: UNK
     Dates: start: 2017, end: 2017

REACTIONS (1)
  - Pancytopenia [Not Recovered/Not Resolved]
